FAERS Safety Report 9841613 (Version 1)
Quarter: 2013Q4

REPORT INFORMATION
  Report Type: Spontaneous
  Country: US (occurrence: None)
  Receive Date: 20131211
  Receipt Date: 20131211
  Transmission Date: 20140711
  Serious: Yes (Other)
  Sender: FDA-Public Use
  Company Number: ALL1-2012-01333

PATIENT
  Age: 11 Year
  Sex: Male

DRUGS (1)
  1. VYVANSE (LISDEXAMFETAMINE DIMESYLATE) CAPSULE [Suspect]
     Indication: ATTENTION DEFICIT/HYPERACTIVITY DISORDER
     Dosage: 60 MG, 1X/DAY: QD, ORAL
     Route: 048
     Dates: end: 201203

REACTIONS (4)
  - Hallucination, auditory [None]
  - Impulsive behaviour [None]
  - Anger [None]
  - Incorrect dose administered [None]
